FAERS Safety Report 8165623-5 (Version None)
Quarter: 2012Q1

REPORT INFORMATION
  Report Type: 
  Country: None (occurrence: None)
  Receive Date: 20120223
  Receipt Date: 20120223
  Transmission Date: 20120608
  Serious: No
  Sender: FDA-Public Use
  Company Number: None

PATIENT
  Sex: Female
  Weight: 28.5766 kg

DRUGS (1)
  1. PERIACTIN [Suspect]
     Indication: MIGRAINE PROPHYLAXIS
     Dosage: 2 TABS BEDTIME
     Dates: start: 20120126, end: 20120127

REACTIONS (3)
  - IRRITABILITY [None]
  - INITIAL INSOMNIA [None]
  - NIGHTMARE [None]
